FAERS Safety Report 8608037-3 (Version None)
Quarter: 2012Q3

REPORT INFORMATION
  Report Type: 
  Country: None (occurrence: None)
  Receive Date: 20120821
  Receipt Date: 20120312
  Transmission Date: 20120928
  Serious: Yes (Congenital Anomaly, Other)
  Sender: FDA-Public Use
  Company Number: NO-ASTRAZENECA-2012SE16978

PATIENT

DRUGS (2)
  1. ROPIVACAINE HYDROCHLORIDE [Suspect]
     Dosage: (MATERNAL DOSE 1 MG/ML)
     Route: 064
  2. FENTANYL CITRATE [Suspect]
     Dosage: (MATERNAL DOSE 2 UG/ML)
     Route: 064

REACTIONS (2)
  - FOETAL EXPOSURE DURING PREGNANCY [None]
  - CONGENITAL HIP DEFORMITY [None]
